FAERS Safety Report 8228994-7 (Version None)
Quarter: 2012Q1

REPORT INFORMATION
  Report Type: 
  Country: None (occurrence: None)
  Receive Date: 20120322
  Receipt Date: 20120312
  Transmission Date: 20120608
  Serious: Yes (Disabling)
  Sender: FDA-Public Use
  Company Number: TR-SANOFI-AVENTIS-2012SA008096

PATIENT
  Age: 59 Year
  Sex: Female
  Weight: 66 kg

DRUGS (8)
  1. METOPROLOL TARTRATE AND HYDROCHLOROTHIAZIDE [Concomitant]
     Indication: CARDIAC DISORDER
     Route: 048
     Dates: start: 20110101
  2. GLUCOBAY [Concomitant]
     Indication: TYPE 2 DIABETES MELLITUS
     Route: 048
     Dates: start: 20110101
  3. BETASERC [Concomitant]
     Indication: VERTIGO
     Route: 048
     Dates: start: 20110101
  4. MINOSET [Concomitant]
     Indication: MYALGIA
     Route: 048
     Dates: start: 20120205
  5. DIAMICRON [Concomitant]
     Indication: TYPE 2 DIABETES MELLITUS
     Route: 048
     Dates: start: 20110101
  6. SOLOSTAR [Suspect]
     Indication: DEVICE THERAPY
     Dates: start: 20110101
  7. METFORMIN HCL [Concomitant]
     Indication: TYPE 2 DIABETES MELLITUS
     Route: 048
     Dates: start: 20110101
  8. LANTUS [Suspect]
     Route: 058
     Dates: start: 20110101

REACTIONS (3)
  - TENDON RUPTURE [None]
  - LIGAMENT SPRAIN [None]
  - DRUG ADMINISTRATION ERROR [None]
